FAERS Safety Report 5014852-8 (Version None)
Quarter: 2006Q2

REPORT INFORMATION
  Report Type: 
  Country: None (occurrence: None)
  Receive Date: 20060419
  Receipt Date: 20051103
  Transmission Date: 20061013
  Serious: Yes (Other)
  Sender: FDA-Public Use
  Company Number: 2005-04366

PATIENT
  Age: 86 Year
  Sex: Male

DRUGS (1)
  1. FERRLECIT [Suspect]
     Dosage: 125 MG, SINGLE, INTRAVENOUS
     Route: 042

REACTIONS (3)
  - CHEST PAIN [None]
  - HYPERHIDROSIS [None]
  - TACHYCARDIA [None]
